FAERS Safety Report 6890603-7 (Version None)
Quarter: 2010Q3

REPORT INFORMATION
  Report Type: 
  Country: None (occurrence: None)
  Receive Date: 20100731
  Receipt Date: 20081230
  Transmission Date: 20110219
  Serious: No
  Sender: FDA-Public Use
  Company Number: US-PFIZER INC-2008088296

PATIENT
  Sex: Female
  Weight: 67.3 kg

DRUGS (4)
  1. LIPITOR [Suspect]
     Indication: BLOOD CHOLESTEROL INCREASED
     Dates: start: 20060101, end: 20081001
  2. CALCIUM [Concomitant]
  3. ALL OTHER THERAPEUTIC PRODUCTS [Concomitant]
  4. METFORMIN HCL [Concomitant]

REACTIONS (3)
  - LIMB DISCOMFORT [None]
  - MUSCULAR WEAKNESS [None]
  - PAIN IN EXTREMITY [None]
